FAERS Safety Report 15877859 (Version 1)
Quarter: 2019Q1

REPORT INFORMATION
  Report Type: Report from Study
  Country: US (occurrence: US)
  Receive Date: 20190128
  Receipt Date: 20190128
  Transmission Date: 20190417
  Serious: Yes (Hospitalization)
  Sender: FDA-Public Use
  Company Number: US-SAKK-2019SA021069AA

PATIENT
  Age: 48 Year
  Sex: Female

DRUGS (1)
  1. INSULIN GLARGINE [Suspect]
     Active Substance: INSULIN GLARGINE
     Indication: TYPE 1 DIABETES MELLITUS
     Dosage: 35 U, BID (35 U AM AND 35 U PM)
     Route: 058

REACTIONS (5)
  - Inability to afford medication [Unknown]
  - Intentional product use issue [Unknown]
  - Hypoglycaemia [Unknown]
  - Cardiac failure chronic [Unknown]
  - Inappropriate schedule of product administration [Unknown]
